FAERS Safety Report 8843160 (Version 2)
Quarter: 2015Q3

REPORT INFORMATION
  Report Type: Report from Study
  Country: US (occurrence: US)
  Receive Date: 20121016
  Receipt Date: 20150820
  Transmission Date: 20151125
  Serious: Yes (Other)
  Sender: FDA-Public Use
  Company Number: US-ROCHE-1141103

PATIENT
  Sex: Male
  Weight: 42.7 kg

DRUGS (17)
  1. NUTROPIN [Suspect]
     Active Substance: SOMATROPIN
     Indication: GROWTH HORMONE DEFICIENCY
     Route: 065
  2. PROTROPIN [Suspect]
     Active Substance: SOMATREM
     Indication: GROWTH HORMONE DEFICIENCY
     Route: 058
     Dates: start: 20000912
  3. PROTROPIN [Suspect]
     Active Substance: SOMATREM
     Route: 058
  4. NUTROPIN [Suspect]
     Active Substance: SOMATROPIN
     Route: 065
  5. NUTROPIN [Suspect]
     Active Substance: SOMATROPIN
     Route: 065
  6. PROTROPIN [Suspect]
     Active Substance: SOMATREM
     Route: 058
  7. NUTROPIN [Suspect]
     Active Substance: SOMATROPIN
     Indication: DWARFISM
     Route: 065
  8. NUTROPIN [Suspect]
     Active Substance: SOMATROPIN
     Route: 065
  9. PREDNISONE. [Concomitant]
     Active Substance: PREDNISONE
  10. NUTROPIN [Suspect]
     Active Substance: SOMATROPIN
     Route: 065
  11. NUTROPIN [Suspect]
     Active Substance: SOMATROPIN
     Route: 065
  12. FLAGYL [Concomitant]
     Active Substance: METRONIDAZOLE\METRONIDAZOLE HYDROCHLORIDE
  13. ASACOL [Concomitant]
     Active Substance: MESALAMINE
  14. PROTROPIN [Suspect]
     Active Substance: SOMATREM
     Route: 058
  15. PROTROPIN [Suspect]
     Active Substance: SOMATREM
     Route: 058
  16. PROTROPIN [Suspect]
     Active Substance: SOMATREM
     Route: 058
  17. PROTROPIN [Suspect]
     Active Substance: SOMATREM
     Route: 058

REACTIONS (4)
  - Injury [Unknown]
  - Multiple fractures [Unknown]
  - Growth retardation [Unknown]
  - Osteoporosis [Unknown]
